FAERS Safety Report 9240961 (Version 1)
Quarter: 2013Q2

REPORT INFORMATION
  Report Type: Spontaneous
  Country: US (occurrence: None)
  Receive Date: 20130418
  Receipt Date: 20130418
  Transmission Date: 20140414
  Serious: Yes (Hospitalization, Other)
  Sender: FDA-Public Use
  Company Number: None

PATIENT
  Age: 78 Year
  Sex: Male

DRUGS (1)
  1. ICLUSIG [Suspect]
     Route: 048
     Dates: start: 20130307, end: 20130328

REACTIONS (2)
  - Heart rate increased [None]
  - Hypertension [None]
